FAERS Safety Report 19504618 (Version 5)
Quarter: 2021Q4

REPORT INFORMATION
  Report Type: Spontaneous
  Country: IE (occurrence: None)
  Receive Date: 20210707
  Receipt Date: 20211221
  Transmission Date: 20220303
  Serious: Yes (Other)
  Sender: FDA-Public Use
  Company Number: IE-MERCK HEALTHCARE KGAA-9250326

PATIENT

DRUGS (1)
  1. MAVENCLAD [Suspect]
     Active Substance: CLADRIBINE
     Indication: Multiple sclerosis

REACTIONS (2)
  - Low birth weight baby [Unknown]
  - Foetal monitoring abnormal [Recovered/Resolved]

NARRATIVE: CASE EVENT DATE: 20210702
